FAERS Safety Report 10902208 (Version 6)
Quarter: 2018Q4

REPORT INFORMATION
  Report Type: Report from Study
  Country: BR (occurrence: BR)
  Receive Date: 20150310
  Receipt Date: 20181218
  Transmission Date: 20190204
  Serious: Yes (Hospitalization, Other)
  Sender: FDA-Public Use
  Company Number: PHHY2015BR028016

PATIENT
  Age: 63 Year
  Sex: Male
  Weight: 84 kg

DRUGS (4)
  1. OMEPRAZOLE. [Concomitant]
     Active Substance: OMEPRAZOLE
     Indication: PAIN PROPHYLAXIS
     Dosage: 1 DF, QD
     Route: 048
  2. BACTRIM [Concomitant]
     Active Substance: SULFAMETHOXAZOLE\TRIMETHOPRIM
     Indication: INFECTION PROPHYLAXIS
     Dosage: 400 MG (1 TABLET), QD
     Route: 048
  3. SANDOSTATIN LAR DEPOT [Suspect]
     Active Substance: OCTREOTIDE ACETATE
     Indication: ACROMEGALY
     Dosage: 1 DF, QMO ( EVERY 28 DAYS)
     Route: 065
     Dates: start: 2004
  4. SANDOSTATIN LAR DEPOT [Suspect]
     Active Substance: OCTREOTIDE ACETATE
     Dosage: 30 MG, QMO (EVERY 28 DAYS)
     Route: 030

REACTIONS (9)
  - Prostatitis [Recovering/Resolving]
  - Faeces soft [Recovered/Resolved]
  - Pyrexia [Recovered/Resolved]
  - Immune system disorder [Recovering/Resolving]
  - Gastrointestinal disorder [Recovered/Resolved]
  - Fall [Recovered/Resolved]
  - Upper limb fracture [Recovering/Resolving]
  - Infection [Recovered/Resolved]
  - Plasma cell myeloma [Recovering/Resolving]

NARRATIVE: CASE EVENT DATE: 2010
